FAERS Safety Report 8312980-2 (Version None)
Quarter: 2012Q2

REPORT INFORMATION
  Report Type: 
  Country: None (occurrence: None)
  Receive Date: 20120426
  Receipt Date: 20120416
  Transmission Date: 20120825
  Serious: Yes (Hospitalization)
  Sender: FDA-Public Use
  Company Number: CA-JNJFOC-20120311361

PATIENT
  Sex: Male
  Weight: 75.2 kg

DRUGS (6)
  1. REMICADE [Suspect]
     Route: 042
     Dates: start: 20120321
  2. REMICADE [Suspect]
     Indication: COLITIS
     Route: 042
     Dates: start: 20120321
  3. REMICADE [Suspect]
     Indication: CROHN'S DISEASE
     Route: 042
     Dates: start: 20120307
  4. IMURAN [Concomitant]
     Route: 065
  5. REMICADE [Suspect]
     Route: 042
     Dates: start: 20120307
  6. PREDNISONE TAB [Concomitant]
     Dosage: 10 MG FOR 7 DAYS AND 35 MG AS NECESSARY POST ORAL
     Route: 065

REACTIONS (6)
  - ANXIETY [None]
  - ABDOMINAL PAIN [None]
  - FREQUENT BOWEL MOVEMENTS [None]
  - EMOTIONAL DISORDER [None]
  - EPISTAXIS [None]
  - MUSCULAR WEAKNESS [None]
